FAERS Safety Report 5670934-9 (Version None)
Quarter: 2008Q1

REPORT INFORMATION
  Report Type: 
  Country: None (occurrence: None)
  Receive Date: 20080318
  Receipt Date: 20080313
  Transmission Date: 20080703
  Serious: Yes (Other)
  Sender: FDA-Public Use
  Company Number: D0056521A

PATIENT
  Age: 22 Year
  Sex: Male

DRUGS (1)
  1. LAMICTAL [Suspect]
     Route: 048

REACTIONS (5)
  - IRRITABILITY [None]
  - NAUSEA [None]
  - PSYCHOTIC DISORDER [None]
  - RESTLESSNESS [None]
  - VOMITING [None]
